FAERS Safety Report 11302920 (Version 1)
Quarter: 2015Q3

REPORT INFORMATION
  Report Type: Spontaneous
  Country: US (occurrence: None)
  Receive Date: 20150723
  Receipt Date: 20150723
  Transmission Date: 20151125
  Serious: Yes (Death)
  Sender: FDA-Public Use
  Company Number: None

PATIENT
  Age: 5 Year
  Sex: Female
  Weight: 16.5 kg

DRUGS (5)
  1. DEXAMETHASONE. [Suspect]
     Active Substance: DEXAMETHASONE
     Dates: end: 20150720
  2. METHOTREXATE [Suspect]
     Active Substance: METHOTREXATE
     Route: 037
     Dates: end: 20150702
  3. ONCASPAR [Suspect]
     Active Substance: PEGASPARGASE
     Dates: end: 20150628
  4. VINCRISTINE SULFATE. [Suspect]
     Active Substance: VINCRISTINE SULFATE
     Dates: end: 20150716
  5. CYTARABINE. [Suspect]
     Active Substance: CYTARABINE
     Route: 037
     Dates: end: 20150625

REACTIONS (11)
  - Cerebral ischaemia [None]
  - Brain hypoxia [None]
  - Ileus [None]
  - Constipation [None]
  - Chills [None]
  - Left ventricular dysfunction [None]
  - Respiration abnormal [None]
  - Pulse absent [None]
  - Tremor [None]
  - Hypotension [None]
  - Sepsis [None]

NARRATIVE: CASE EVENT DATE: 20150709
